FAERS Safety Report 7583881-2 (Version None)
Quarter: 2011Q2

REPORT INFORMATION
  Report Type: 
  Country: None (occurrence: None)
  Receive Date: 20110531
  Receipt Date: 20100507
  Transmission Date: 20111010
  Serious: Yes (Other)
  Sender: FDA-Public Use
  Company Number: 308362

PATIENT
  Sex: Female

DRUGS (4)
  1. PROVERA [Suspect]
     Indication: PRODUCT USED FOR UNKNOWN INDICATION
  2. COMBIPATCH [Suspect]
     Indication: PRODUCT USED FOR UNKNOWN INDICATION
  3. CLIMARA [Suspect]
     Indication: PRODUCT USED FOR UNKNOWN INDICATION
  4. ACTIVELLA [Suspect]
     Indication: PRODUCT USED FOR UNKNOWN INDICATION

REACTIONS (1)
  - BREAST CANCER [None]
